FAERS Safety Report 10994919 (Version 1)
Quarter: 2015Q2

REPORT INFORMATION
  Report Type: Spontaneous
  Country: HR (occurrence: HR)
  Receive Date: 20150407
  Receipt Date: 20150407
  Transmission Date: 20150821
  Serious: Yes (Hospitalization)
  Sender: FDA-Public Use
  Company Number: HR-ELI_LILLY_AND_COMPANY-HR201503010066

PATIENT
  Age: 58 Year
  Sex: Female

DRUGS (1)
  1. ZYPADHERA [Suspect]
     Active Substance: OLANZAPINE PAMOATE
     Indication: PRODUCT USED FOR UNKNOWN INDICATION
     Dosage: 405 MG, MONTHLY (1/M)
     Route: 030

REACTIONS (2)
  - Injection site abscess [Unknown]
  - Injection site pain [Unknown]

NARRATIVE: CASE EVENT DATE: 20150325
